FAERS Safety Report 6905879-7 (Version None)
Quarter: 2010Q3

REPORT INFORMATION
  Report Type: 
  Country: None (occurrence: None)
  Receive Date: 20100803
  Receipt Date: 20100803
  Transmission Date: 20110219
  Serious: Yes (Other)
  Sender: FDA-Public Use
  Company Number: None

PATIENT
  Sex: Female
  Weight: 30.8446 kg

DRUGS (2)
  1. OXYBUTYNIN [Suspect]
     Indication: INCONTINENCE
     Dosage: 10 MG DAILY P.O.
     Route: 048
     Dates: start: 20100101, end: 20100301
  2. OXYBUTYNIN [Suspect]
     Indication: INCONTINENCE
     Dosage: 10 MG DAILY P.O.
     Route: 048
     Dates: start: 20100101, end: 20100301

REACTIONS (1)
  - DRUG INEFFECTIVE [None]
